FAERS Safety Report 5941011-4 (Version None)
Quarter: 2008Q4

REPORT INFORMATION
  Report Type: 
  Country: None (occurrence: None)
  Receive Date: 20081104
  Receipt Date: 20081029
  Transmission Date: 20090506
  Serious: Yes (Other)
  Sender: FDA-Public Use
  Company Number: PHHY2008FR26721

PATIENT
  Sex: Male

DRUGS (1)
  1. DESERNIL [Suspect]
     Indication: MIGRAINE

REACTIONS (1)
  - PERIARTHRITIS [None]
